FAERS Safety Report 8315089-7 (Version None)
Quarter: 2012Q2

REPORT INFORMATION
  Report Type: 
  Country: None (occurrence: None)
  Receive Date: 20120426
  Receipt Date: 20120420
  Transmission Date: 20120825
  Serious: Yes (Hospitalization, Other)
  Sender: FDA-Public Use
  Company Number: US-BAYER-2011-083290

PATIENT
  Age: 29 Year
  Sex: Female

DRUGS (5)
  1. MOTRIN [Concomitant]
     Indication: PAIN
     Dosage: 800 MG PRN
     Route: 048
     Dates: start: 20091230
  2. VICODIN [Concomitant]
     Dosage: 5-325
     Dates: start: 20091230
  3. HYDROCODONE [Concomitant]
     Dosage: UNK
     Dates: start: 20091230
  4. NAPARIAN [Concomitant]
     Dosage: 750 MG, QD
     Dates: start: 20100115
  5. YASMIN [Suspect]
     Dosage: UNK
     Dates: start: 20050601, end: 20060101

REACTIONS (7)
  - ANHEDONIA [None]
  - EMOTIONAL DISTRESS [None]
  - CHOLECYSTECTOMY [None]
  - CHOLELITHIASIS [None]
  - PAIN [None]
  - INJURY [None]
  - ANXIETY [None]
